FAERS Safety Report 9114618 (Version 2)
Quarter: 2013Q2

REPORT INFORMATION
  Report Type: Report from Study
  Country: DE (occurrence: DE)
  Receive Date: 20130128
  Receipt Date: 20130510
  Transmission Date: 20140414
  Serious: Yes (Death)
  Sender: FDA-Public Use
  Company Number: DE-ACTELION-A-US2013-78441

PATIENT
  Age: 71 Year
  Sex: Male

DRUGS (4)
  1. VENTAVIS [Suspect]
     Indication: PULMONARY ARTERIAL HYPERTENSION
     Dosage: 5 ?G, Q4HRS
     Route: 055
     Dates: start: 20100521
  2. TRACLEER [Concomitant]
  3. MARCUMAR [Concomitant]
  4. DIOVAN [Concomitant]

REACTIONS (3)
  - Cardiac disorder [Fatal]
  - Pulmonary hypertension [Fatal]
  - Sudden cardiac death [Fatal]
